FAERS Safety Report 4738664-5 (Version None)
Quarter: 2005Q3

REPORT INFORMATION
  Report Type: 
  Country: None (occurrence: None)
  Receive Date: 20050803
  Receipt Date: 20050727
  Transmission Date: 20060218
  Serious: Yes (Other)
  Sender: FDA-Public Use
  Company Number: EWC050745054

PATIENT
  Age: 56 Year
  Sex: Male

DRUGS (2)
  1. HUMULIN-HUMAN INSULIN (RDNA) UNKNOWN FORMULATION (HU [Suspect]
     Indication: DIABETES MELLITUS
     Dates: start: 20030101
  2. HUMULIN-HUMAN INSULIN (RDNA) UNKNOWN FORMULATION (HU [Suspect]
     Indication: DIABETES MELLITUS
     Dates: start: 20030101

REACTIONS (1)
  - LUNG NEOPLASM MALIGNANT [None]
